FAERS Safety Report 18710535 (Version 1)
Quarter: 2021Q1

REPORT INFORMATION
  Report Type: Spontaneous
  Country: US (occurrence: US)
  Receive Date: 20210107
  Receipt Date: 20210107
  Transmission Date: 20210419
  Serious: No
  Sender: FDA-Public Use
  Company Number: US-AUROBINDO-AUR-APL-2020-037982

PATIENT
  Age: 25 Year
  Sex: Female

DRUGS (2)
  1. MINOCYCLINE 90MG [Suspect]
     Active Substance: MINOCYCLINE HYDROCHLORIDE
     Dosage: TOOK AT LATER TIME (6 PM)
     Route: 065
     Dates: start: 20200728
  2. MINOCYCLINE 90MG [Suspect]
     Active Substance: MINOCYCLINE HYDROCHLORIDE
     Indication: PRODUCT USED FOR UNKNOWN INDICATION
     Dosage: TAKING PRESCRIPTION FOR 5/6 DAYS AROUND 5/6 PM
     Route: 065

REACTIONS (5)
  - Dizziness [Recovered/Resolved]
  - Disorientation [Recovered/Resolved]
  - Malaise [Recovered/Resolved]
  - Autoscopy [Recovered/Resolved]
  - Panic attack [Recovered/Resolved]

NARRATIVE: CASE EVENT DATE: 20200728
